FAERS Safety Report 16842217 (Version 2)
Quarter: 2019Q3

REPORT INFORMATION
  Report Type: Report from Study
  Country: US (occurrence: US)
  Receive Date: 20190924
  Receipt Date: 20190930
  Transmission Date: 20191005
  Serious: Yes (Other)
  Sender: FDA-Public Use
  Company Number: PHEH2019US038412

PATIENT
  Age: 48 Year
  Sex: Female
  Weight: 63.5 kg

DRUGS (8)
  1. REBIF [Concomitant]
     Active Substance: INTERFERON BETA-1A
     Indication: PRODUCT USED FOR UNKNOWN INDICATION
     Route: 065
  2. TYSABRI [Concomitant]
     Active Substance: NATALIZUMAB
     Indication: PRODUCT USED FOR UNKNOWN INDICATION
     Route: 065
  3. COPAXONE [Concomitant]
     Active Substance: GLATIRAMER ACETATE
     Indication: PRODUCT USED FOR UNKNOWN INDICATION
     Route: 065
  4. RITUXAN [Concomitant]
     Active Substance: RITUXIMAB
     Indication: PRODUCT USED FOR UNKNOWN INDICATION
     Route: 065
  5. XANAX [Concomitant]
     Active Substance: ALPRAZOLAM
     Indication: PRODUCT USED FOR UNKNOWN INDICATION
     Route: 065
  6. DETROL LA [Concomitant]
     Active Substance: TOLTERODINE TARTRATE
     Indication: PRODUCT USED FOR UNKNOWN INDICATION
     Route: 065
  7. BETASONE [Concomitant]
     Indication: PRODUCT USED FOR UNKNOWN INDICATION
     Route: 065
  8. GILENYA [Suspect]
     Active Substance: FINGOLIMOD HYDROCHLORIDE
     Indication: MULTIPLE SCLEROSIS
     Dosage: 0.5 MG, QD
     Route: 048
     Dates: start: 201407

REACTIONS (5)
  - JC polyomavirus test positive [Unknown]
  - Uterine leiomyoma [Unknown]
  - Basal cell carcinoma [Recovered/Resolved]
  - Skin lesion [Recovered/Resolved]
  - Melanocytic naevus [Unknown]

NARRATIVE: CASE EVENT DATE: 201904
